FAERS Safety Report 4542307-3 (Version None)
Quarter: 2004Q4

REPORT INFORMATION
  Report Type: 
  Country: None (occurrence: None)
  Receive Date: 20041227
  Receipt Date: 20041220
  Transmission Date: 20050328
  Serious: Yes (Hospitalization)
  Sender: FDA-Public Use
  Company Number: 211083

PATIENT
  Age: 56 Year
  Sex: Female

DRUGS (12)
  1. XOLAIR [Suspect]
     Indication: ASTHMA
     Dosage: 225 MG, 1/MONTH, SUBCUTANEOUS : 150 MG, SUBCUTANEOUS
     Route: 058
     Dates: start: 20041111, end: 20041207
  2. XOLAIR [Suspect]
     Indication: ASTHMA
     Dosage: 225 MG, 1/MONTH, SUBCUTANEOUS : 150 MG, SUBCUTANEOUS
     Route: 058
     Dates: start: 20041213
  3. LEVAQUIN [Concomitant]
  4. LASIX [Concomitant]
  5. PREMPRO [Concomitant]
  6. SYNTHROID [Concomitant]
  7. MEDROL [Concomitant]
  8. PREVACID [Concomitant]
  9. ADVAIR (FLUTICASONE PROPIONATE, SALMETEROL XINAFOATE) [Concomitant]
  10. NITROSTAT [Concomitant]
  11. XOPENEX [Concomitant]
  12. SPIRIVA [Concomitant]

REACTIONS (3)
  - ASTHMA [None]
  - CONDITION AGGRAVATED [None]
  - FEELING ABNORMAL [None]
